FAERS Safety Report 8621082 (Version 2)
Quarter: 2012Q4

REPORT INFORMATION
  Report Type: Spontaneous
  Country: US (occurrence: None)
  Receive Date: 20120605
  Receipt Date: 20120924
  Transmission Date: 20130627
  Serious: Yes (Death)
  Sender: FDA-Public Use
  Company Number: ADR-2012-01007

PATIENT
  Age: 31 Year
  Sex: Female

DRUGS (4)
  1. GABLOFEN [Suspect]
     Indication: SPASTICITY
  2. GABLOFEN [Suspect]
     Indication: HEAD INJURY
  3. GABLOFEN [Suspect]
     Indication: HEAD INJURY
  4. GABLOFEN [Suspect]
     Indication: BRAIN INJURY

REACTIONS (1)
  - Death [None]
